FAERS Safety Report 21203057 (Version 1)
Quarter: 2022Q3

REPORT INFORMATION
  Report Type: Spontaneous
  Country: US (occurrence: US)
  Receive Date: 20220811
  Receipt Date: 20220811
  Transmission Date: 20221027
  Serious: No
  Sender: FDA-Public Use
  Company Number: US-OTSUKA-2022_011036

PATIENT
  Sex: Female
  Weight: 62.14 kg

DRUGS (1)
  1. REXULTI [Suspect]
     Active Substance: BREXPIPRAZOLE
     Indication: Product used for unknown indication
     Dosage: 2 MG
     Route: 065

REACTIONS (10)
  - Appetite disorder [Unknown]
  - Depression [Unknown]
  - Polyuria [Unknown]
  - Illness [Unknown]
  - Thirst [Unknown]
  - Sleep disorder [Unknown]
  - Blood cholesterol increased [Unknown]
  - Hypertension [Unknown]
  - Dry mouth [Unknown]
  - Weight increased [Unknown]
